FAERS Safety Report 7982497-3 (Version None)
Quarter: 2011Q4

REPORT INFORMATION
  Report Type: 
  Country: None (occurrence: None)
  Receive Date: 20111215
  Receipt Date: 20111206
  Transmission Date: 20120403
  Serious: Yes (Hospitalization)
  Sender: FDA-Public Use
  Company Number: DE-ROCHE-1020200

PATIENT
  Sex: Male
  Weight: 65 kg

DRUGS (2)
  1. PEGINTERFERON ALFA-2A [Suspect]
     Indication: HEPATITIS C
     Route: 058
     Dates: start: 20110407
  2. COPEGUS [Suspect]
     Indication: HEPATITIS C

REACTIONS (2)
  - ACCIDENT [None]
  - BURSA DISORDER [None]
